FAERS Safety Report 6672432-2 (Version None)
Quarter: 2010Q2

REPORT INFORMATION
  Report Type: 
  Country: None (occurrence: None)
  Receive Date: 20100408
  Receipt Date: 20100331
  Transmission Date: 20101027
  Serious: Yes (Other)
  Sender: FDA-Public Use
  Company Number: US-ASTRAZENECA-2009SE15672

PATIENT
  Age: 17327 Day
  Weight: 142.9 kg

DRUGS (4)
  1. SEROQUEL [Suspect]
     Route: 048
     Dates: start: 20060621
  2. NEURONTIN [Concomitant]
     Dates: start: 20060621
  3. LITHIUM [Concomitant]
     Dates: start: 20060621
  4. LORAZEPAM [Concomitant]
     Dates: start: 20060621

REACTIONS (2)
  - DIABETES MELLITUS [None]
  - NEUROPATHY PERIPHERAL [None]
